FAERS Safety Report 23684065 (Version 1)
Quarter: 2024Q1

REPORT INFORMATION
  Report Type: Spontaneous
  Country: US (occurrence: US)
  Receive Date: 20240328
  Receipt Date: 20240328
  Transmission Date: 20240409
  Serious: Yes (Other)
  Sender: FDA-Public Use
  Company Number: US-BAYER-2024A045333

PATIENT

DRUGS (1)
  1. BAYER LOW DOSE [Suspect]
     Active Substance: ASPIRIN
     Indication: Prophylaxis

REACTIONS (3)
  - Diabetes mellitus [Unknown]
  - Chronic kidney disease [Unknown]
  - Peripheral swelling [Unknown]
